FAERS Safety Report 4974926-4 (Version None)
Quarter: 2006Q2

REPORT INFORMATION
  Report Type: 
  Country: None (occurrence: None)
  Receive Date: 20060418
  Receipt Date: 20060407
  Transmission Date: 20061013
  Serious: Yes (Death)
  Sender: FDA-Public Use
  Company Number: JP-JNJFOC-20041008016

PATIENT
  Sex: Female
  Weight: 37 kg

DRUGS (5)
  1. REMICADE [Suspect]
     Route: 042
  2. REMICADE [Suspect]
     Indication: CROHN'S DISEASE
     Route: 042
  3. PENTASA [Concomitant]
     Route: 048
  4. PREDONINE [Concomitant]
     Route: 042
  5. VANCOMYCIN [Concomitant]
     Route: 042

REACTIONS (4)
  - ABDOMINAL ABSCESS [None]
  - CATHETER RELATED INFECTION [None]
  - DISSEMINATED INTRAVASCULAR COAGULATION [None]
  - SEPSIS [None]
